FAERS Safety Report 18172532 (Version 2)
Quarter: 2020Q3

REPORT INFORMATION
  Report Type: Report from Study
  Country: US (occurrence: US)
  Receive Date: 20200820
  Receipt Date: 20200824
  Transmission Date: 20201103
  Serious: Yes (Hospitalization)
  Sender: FDA-Public Use
  Company Number: US-CELGENEUS-USA-20200803925

PATIENT
  Age: 75 Year
  Sex: Male

DRUGS (21)
  1. IXAZOMIB [Suspect]
     Active Substance: IXAZOMIB
     Dosage: CYCLE 6, ON DAY 1,8 AND 15
     Route: 048
     Dates: start: 20200625, end: 20200708
  2. DEXAMETHASONE. [Suspect]
     Active Substance: DEXAMETHASONE
     Dosage: 20 MILLIGRAMS, CYCLE 6, DAY 1, 8, 15 AND 22
     Route: 048
     Dates: start: 20200625, end: 20200715
  3. POMALIDOMIDE [Suspect]
     Active Substance: POMALIDOMIDE
     Indication: PLASMA CELL MYELOMA
     Dosage: 4 MILLIGRAM
     Route: 048
     Dates: start: 20200122, end: 20200212
  4. POMALIDOMIDE [Suspect]
     Active Substance: POMALIDOMIDE
     Dosage: 3 MILLIGRAM, CYCLE 2
     Route: 048
     Dates: start: 20200226, end: 20200317
  5. POMALIDOMIDE [Suspect]
     Active Substance: POMALIDOMIDE
     Dosage: 2 MILLIGRAM, CYCLE 6
     Route: 048
     Dates: start: 20200625, end: 20200715
  6. DEXAMETHASONE. [Suspect]
     Active Substance: DEXAMETHASONE
     Indication: PLASMA CELL MYELOMA
     Route: 048
     Dates: start: 20200122, end: 20200212
  7. DEXAMETHASONE. [Suspect]
     Active Substance: DEXAMETHASONE
     Dosage: 40 MILLIGRAMS, CYCLE 3, DAY 1, 8, 15 AND 22
     Route: 048
     Dates: start: 20200401, end: 20200422
  8. POMALIDOMIDE [Suspect]
     Active Substance: POMALIDOMIDE
     Dosage: 2 MILLIGRAM, CYCLE 5
     Route: 048
     Dates: start: 20200527, end: 20200616
  9. IXAZOMIB [Suspect]
     Active Substance: IXAZOMIB
     Indication: PLASMA CELL MYELOMA
     Route: 048
     Dates: start: 20200122, end: 20200205
  10. ANTIBIOTICS [Concomitant]
     Active Substance: UNSPECIFIED INGREDIENT
     Indication: PRODUCT USED FOR UNKNOWN INDICATION
     Route: 041
  11. POMALIDOMIDE [Suspect]
     Active Substance: POMALIDOMIDE
     Dosage: 2 MILLIGRAM, CYCLE 4
     Route: 048
     Dates: start: 20200429, end: 20200519
  12. DARATUMUMAB [Suspect]
     Active Substance: DARATUMUMAB
     Dosage: ON DAY 1 AND 15
     Route: 041
     Dates: start: 20200527, end: 20200610
  13. IXAZOMIB [Suspect]
     Active Substance: IXAZOMIB
     Dosage: CYCLE 2, ON DAY 1,8 AND 15
     Route: 048
     Dates: start: 20200226, end: 20200311
  14. IXAZOMIB [Suspect]
     Active Substance: IXAZOMIB
     Dosage: CYCLE 3, ON DAY 1,8 AND 15
     Route: 048
     Dates: start: 20200401, end: 20200415
  15. POMALIDOMIDE [Suspect]
     Active Substance: POMALIDOMIDE
     Dosage: 2 MILLIGRAM, CYCLE 3
     Route: 048
     Dates: start: 20200402, end: 20200422
  16. IXAZOMIB [Suspect]
     Active Substance: IXAZOMIB
     Dosage: CYCLE 5 ON DAY 1,8 AND 15
     Route: 048
     Dates: start: 20200527, end: 20200610
  17. DEXAMETHASONE. [Suspect]
     Active Substance: DEXAMETHASONE
     Dosage: 40 MILLIGRAMS, CYCLE 2, DAY 1, 8, 15 AND 22
     Route: 048
     Dates: start: 20200226, end: 20200318
  18. DEXAMETHASONE. [Suspect]
     Active Substance: DEXAMETHASONE
     Dosage: 20 MILLIGRAMS, CYCLE 5, DAY 1, 8, 15 AND 22
     Route: 048
     Dates: start: 20200527, end: 20200617
  19. IXAZOMIB [Suspect]
     Active Substance: IXAZOMIB
     Dosage: CYCLE 4, ON DAY 1,8 AND 15
     Route: 048
     Dates: start: 20200429, end: 20200513
  20. DARATUMUMAB [Suspect]
     Active Substance: DARATUMUMAB
     Indication: PLASMA CELL MYELOMA
     Route: 065
     Dates: start: 20200429, end: 20200513
  21. DEXAMETHASONE. [Suspect]
     Active Substance: DEXAMETHASONE
     Dosage: 20 MILLIGRAMS, CYCLE 4, DAY 1, 8, 15 AND 22
     Route: 048
     Dates: start: 20200429, end: 20200520

REACTIONS (2)
  - Pneumonia [Unknown]
  - Pyrexia [Unknown]

NARRATIVE: CASE EVENT DATE: 20200815
